FAERS Safety Report 6484418-1 (Version None)
Quarter: 2009Q4

REPORT INFORMATION
  Report Type: 
  Country: None (occurrence: None)
  Receive Date: 20091203
  Receipt Date: 20091123
  Transmission Date: 20100525
  Serious: Yes (Hospitalization)
  Sender: FDA-Public Use
  Company Number: 8055353

PATIENT
  Age: 16 Year
  Sex: Male

DRUGS (2)
  1. XYZAL [Suspect]
  2. ROVAMYCINE /00074401/ [Concomitant]

REACTIONS (1)
  - STEVENS-JOHNSON SYNDROME [None]
